FAERS Safety Report 19800471 (Version 1)
Quarter: 2021Q3

REPORT INFORMATION
  Report Type: Spontaneous
  Country: GB (occurrence: GB)
  Receive Date: 20210908
  Receipt Date: 20210908
  Transmission Date: 20211014
  Serious: Yes (Other)
  Sender: FDA-Public Use
  Company Number: GB-SUN PHARMACEUTICAL INDUSTRIES LTD-2021RR-310444

PATIENT
  Age: 62 Year
  Sex: Male
  Weight: 72 kg

DRUGS (9)
  1. AMLODIPINE [Concomitant]
     Active Substance: AMLODIPINE BESYLATE
     Indication: PRODUCT USED FOR UNKNOWN INDICATION
     Dosage: 1 DOSAGE FORM, DAILY
     Route: 065
     Dates: start: 20210804
  2. HYDROCORTISONE. [Concomitant]
     Active Substance: HYDROCORTISONE
     Indication: PRODUCT USED FOR UNKNOWN INDICATION
     Dosage: 1 DOSAGE FORM, BID, APPLY TO HANDS (PALMS)
     Route: 065
     Dates: start: 20210804
  3. DERMOVATE [Concomitant]
     Active Substance: CLOBETASOL
     Indication: SKIN LESION
     Dosage: APPLY (EXCEPT FACE)
     Route: 065
     Dates: start: 20201214, end: 20210820
  4. CLARITHROMYCIN. [Suspect]
     Active Substance: CLARITHROMYCIN
     Indication: PRODUCT USED FOR UNKNOWN INDICATION
     Dosage: 500 MILLIGRAM, UNK, TABLET
     Route: 065
     Dates: start: 20200501
  5. EUMOVATE [Concomitant]
     Active Substance: CLOBETASONE BUTYRATE
     Indication: SKIN LESION
     Dosage: APPLY AT BEDTIME
     Route: 065
     Dates: start: 20201214, end: 20210820
  6. DOUBLEBASE [Concomitant]
     Active Substance: ISOPROPYL MYRISTATE\PARAFFIN
     Indication: DRY SKIN
     Dosage: APPLY REQUENTLY TO MOISTURISE
     Route: 065
     Dates: start: 20210727
  7. TACROLIMUS. [Concomitant]
     Active Substance: TACROLIMUS
     Indication: PRODUCT USED FOR UNKNOWN INDICATION
     Dosage: APPLY DAILY AS DIRECTED BY DERMATOLOGY MON TO FRI
     Route: 065
     Dates: start: 20201005
  8. CETRABEN EMOLLIENT CREAM [Concomitant]
     Indication: PRODUCT USED FOR UNKNOWN INDICATION
     Dosage: USE AS DIRECTED
     Route: 065
     Dates: start: 20210615, end: 20210625
  9. MOMETASONE [Concomitant]
     Active Substance: MOMETASONE
     Indication: PRODUCT USED FOR UNKNOWN INDICATION
     Dosage: 1 DOSAGE FORM, DAILY, APPLY THINLY TO THE AFFECTED AREA
     Route: 065
     Dates: start: 20210615

REACTIONS (2)
  - Dermatitis exfoliative [Unknown]
  - Rash [Unknown]

NARRATIVE: CASE EVENT DATE: 20210501
